FAERS Safety Report 23604926 (Version 1)
Quarter: 2024Q1

REPORT INFORMATION
  Report Type: Spontaneous
  Country: FR (occurrence: FR)
  Receive Date: 20240307
  Receipt Date: 20240307
  Transmission Date: 20240410
  Serious: Yes (Other)
  Sender: FDA-Public Use
  Company Number: FR-GERMAN-LIT/FRA/24/0003800

PATIENT
  Age: 72 Year
  Sex: Male

DRUGS (5)
  1. CYCLOPHOSPHAMIDE [Suspect]
     Active Substance: CYCLOPHOSPHAMIDE
     Indication: Pleural mesothelioma
     Dosage: 1000MG MONTHLY 5 CYCLES
  2. RITUXIMAB [Suspect]
     Active Substance: RITUXIMAB
     Indication: Pleural mesothelioma
     Dosage: 1000MG 14?DAYS APART, 1 CYCLE.
  3. PREDNISONE [Concomitant]
     Active Substance: PREDNISONE
     Indication: Mononeuropathy multiplex
     Route: 048
  4. PREDNISONE [Concomitant]
     Active Substance: PREDNISONE
     Dosage: 5 MG/WEEK
  5. METHYLPREDNISOLONE [Concomitant]
     Active Substance: METHYLPREDNISOLONE
     Indication: Mononeuropathy multiplex
     Dosage: 120 MG DAILY FOR 3 DAYS, 240 MG DAILY FOR ANOTHER 3 DAYS
     Route: 042

REACTIONS (2)
  - Disease progression [Unknown]
  - Treatment failure [Unknown]
